FAERS Safety Report 9892810 (Version 1)
Quarter: 2014Q1

REPORT INFORMATION
  Report Type: Spontaneous
  Country: US (occurrence: US)
  Receive Date: 20140213
  Receipt Date: 20140213
  Transmission Date: 20141002
  Serious: Yes (Life-Threatening, Hospitalization, Other)
  Sender: FDA-Public Use
  Company Number: US-009507513-1402USA004678

PATIENT
  Age: 57 Year
  Sex: Female

DRUGS (3)
  1. JANUVIA [Suspect]
     Indication: DIABETES MELLITUS MANAGEMENT
     Dosage: 100 MG, QD
     Route: 048
     Dates: end: 201308
  2. ACTOS [Concomitant]
     Dosage: UNK
     Dates: end: 201308
  3. METFORMIN [Concomitant]
     Dosage: UNK
     Dates: end: 201308

REACTIONS (2)
  - Pancreatic carcinoma [Unknown]
  - Pancreatitis [Unknown]
